FAERS Safety Report 18575472 (Version 2)
Quarter: 2021Q1

REPORT INFORMATION
  Report Type: Spontaneous
  Country: BR (occurrence: BR)
  Receive Date: 20201203
  Receipt Date: 20210115
  Transmission Date: 20210419
  Serious: Yes (Other)
  Sender: FDA-Public Use
  Company Number: BR-GLAXOSMITHKLINE-BR2020AMR236297

PATIENT
  Age: 7 Year
  Sex: Male

DRUGS (7)
  1. NUCALA [Suspect]
     Active Substance: MEPOLIZUMAB
     Indication: ASTHMA
     Dosage: 100 MG
     Route: 042
     Dates: start: 20201215
  2. SERETIDE [Suspect]
     Active Substance: FLUTICASONE PROPIONATE\SALMETEROL XINAFOATE
     Indication: ASTHMA
     Dosage: UNK, TID
     Dates: end: 20201104
  3. SYMBICORT [Suspect]
     Active Substance: BUDESONIDE\FORMOTEROL FUMARATE DIHYDRATE
     Indication: ASTHMA
     Dosage: UNK, TID
     Dates: start: 20201105
  4. AZITROMICIN [Suspect]
     Active Substance: AZITHROMYCIN
     Indication: PRODUCT USED FOR UNKNOWN INDICATION
     Dosage: 250 MG, 3 X WEEK
     Dates: start: 201908
  5. SPIRIVA [Suspect]
     Active Substance: TIOTROPIUM BROMIDE MONOHYDRATE
     Indication: PRODUCT USED FOR UNKNOWN INDICATION
     Dosage: UNK
     Dates: start: 2018, end: 201910
  6. AEROLIN [Suspect]
     Active Substance: ALBUTEROL
     Indication: CRYING
     Dosage: UNK
  7. SINGULAIR [Suspect]
     Active Substance: MONTELUKAST SODIUM
     Indication: PRODUCT USED FOR UNKNOWN INDICATION
     Dosage: 5 MG, QD (AT NIGHT)

REACTIONS (14)
  - Apnoea [Unknown]
  - Cough [Unknown]
  - Sneezing [Unknown]
  - Crying [Recovering/Resolving]
  - Nasal septal operation [Unknown]
  - Dyspnoea [Unknown]
  - Tonsillectomy [Unknown]
  - Poor quality sleep [Unknown]
  - Wheezing [Unknown]
  - Polypectomy [Unknown]
  - Intentional product misuse [Unknown]
  - Sleep disorder [Unknown]
  - Oxygen saturation decreased [Unknown]
  - Product use issue [Unknown]

NARRATIVE: CASE EVENT DATE: 201903
